FAERS Safety Report 15682875 (Version 1)
Quarter: 2018Q4

REPORT INFORMATION
  Report Type: Spontaneous
  Country: US (occurrence: US)
  Receive Date: 20181203
  Receipt Date: 20181203
  Transmission Date: 20190205
  Serious: No
  Sender: FDA-Public Use
  Company Number: US-BAYER-2018-221930

PATIENT
  Age: 84 Year
  Sex: Male
  Weight: 78 kg

DRUGS (1)
  1. MIRALAX [Suspect]
     Active Substance: POLYETHYLENE GLYCOL 3350
     Indication: GASTROINTESTINAL DISORDER
     Dosage: UNK, 1/2 TO 3/4 DOSE
     Route: 048
     Dates: start: 20181127, end: 20181129

REACTIONS (4)
  - Product quality issue [Unknown]
  - Product use issue [Unknown]
  - Poor quality product administered [Unknown]
  - Incorrect dose administered [Unknown]

NARRATIVE: CASE EVENT DATE: 20181127
